FAERS Safety Report 5772274-6 (Version None)
Quarter: 2008Q2

REPORT INFORMATION
  Report Type: 
  Country: None (occurrence: None)
  Receive Date: 20080613
  Receipt Date: 20080605
  Transmission Date: 20081010
  Serious: Yes (Disabling, Other)
  Sender: FDA-Public Use
  Company Number: PHEH2008US05108

PATIENT
  Sex: Male
  Weight: 88.435 kg

DRUGS (3)
  1. DIOVAN [Suspect]
     Indication: HYPERTENSION
     Dosage: UNK
     Route: 048
  2. MULTIVITAMINS, OTHER COMBINATIONS [Concomitant]
  3. VITAMIN A [Concomitant]

REACTIONS (8)
  - AGEUSIA [None]
  - ANOSMIA [None]
  - ASTHENIA [None]
  - BLOOD PRESSURE DIASTOLIC INCREASED [None]
  - DYSGEUSIA [None]
  - NOSE DEFORMITY [None]
  - PAROSMIA [None]
  - WEIGHT DECREASED [None]
